FAERS Safety Report 5865113-6 (Version None)
Quarter: 2008Q3

REPORT INFORMATION
  Report Type: 
  Country: None (occurrence: None)
  Receive Date: 20080829
  Receipt Date: 20080825
  Transmission Date: 20090109
  Serious: Yes (Hospitalization)
  Sender: FDA-Public Use
  Company Number: A0744137A

PATIENT
  Age: 39 Year
  Sex: Male

DRUGS (2)
  1. LAMICTAL [Suspect]
     Indication: BIPOLAR DISORDER
     Dosage: 100MG PER DAY
     Route: 048
     Dates: start: 20060101
  2. ANTIBIOTIC [Concomitant]

REACTIONS (7)
  - ABDOMINAL DISCOMFORT [None]
  - DEHYDRATION [None]
  - DIARRHOEA [None]
  - NAUSEA [None]
  - PYREXIA [None]
  - RASH [None]
  - THROAT TIGHTNESS [None]
